FAERS Safety Report 5014677-3 (Version None)
Quarter: 2006Q2

REPORT INFORMATION
  Report Type: 
  Country: None (occurrence: None)
  Receive Date: 20060531
  Receipt Date: 20060522
  Transmission Date: 20061013
  Serious: Yes (Hospitalization)
  Sender: FDA-Public Use
  Company Number: PHNU2006DE02054

PATIENT
  Sex: Female

DRUGS (7)
  1. EXELON [Suspect]
     Dosage: 3 MG, QD
     Route: 048
     Dates: start: 20060520, end: 20060520
  2. EXELON [Suspect]
     Dosage: 1.5 MG, QD
     Route: 048
     Dates: start: 20060101, end: 20060519
  3. LANITOP [Concomitant]
     Dosage: 0.1 MG/DAY
     Route: 048
  4. BELOC MITE [Concomitant]
     Dosage: 95 MG/DAY
     Route: 065
  5. TORSEMIDE [Concomitant]
     Dosage: 5 MG/DAY
     Route: 065
  6. ISCOVER [Concomitant]
     Dosage: 75 MG/DAY
     Route: 065
  7. EUNERPAN [Concomitant]
     Dosage: UINKNOWN
     Route: 065

REACTIONS (5)
  - BLOOD PRESSURE INCREASED [None]
  - DIZZINESS [None]
  - DYSPNOEA [None]
  - HYPERTENSION [None]
  - NAUSEA [None]
